FAERS Safety Report 8420468-3 (Version None)
Quarter: 2012Q2

REPORT INFORMATION
  Report Type: 
  Country: None (occurrence: None)
  Receive Date: 20120608
  Receipt Date: 20120604
  Transmission Date: 20120825
  Serious: Yes (Other)
  Sender: FDA-Public Use
  Company Number: NL-AMGEN-NLDSP2012030304

PATIENT
  Age: 42 Year
  Sex: Female

DRUGS (3)
  1. PROLIA [Suspect]
     Indication: OSTEOPOROSIS
     Dosage: UNK
     Dates: start: 20120101
  2. CALCICHEW-D3 [Concomitant]
     Route: 048
  3. DESOGESTREL AND ETHINYL ESTRADIOL [Concomitant]
     Route: 048

REACTIONS (5)
  - HYPOPHOSPHATAEMIA [None]
  - HYPOCALCAEMIA [None]
  - RENAL TUBULAR DISORDER [None]
  - DIARRHOEA [None]
  - LIVER FUNCTION TEST ABNORMAL [None]
